FAERS Safety Report 5280383-3 (Version None)
Quarter: 2007Q1

REPORT INFORMATION
  Report Type: 
  Country: None (occurrence: None)
  Receive Date: 20070326
  Receipt Date: 20070326
  Transmission Date: 20070707
  Serious: No
  Sender: FDA-Public Use
  Company Number: None

PATIENT
  Age: 51 Year
  Sex: Male
  Weight: 113.3993 kg

DRUGS (1)
  1. AMITIZA [Suspect]
     Indication: CONSTIPATION
     Dosage: 24 MCG BID PO
     Route: 048
     Dates: start: 20070218, end: 20070221

REACTIONS (2)
  - BLINDNESS UNILATERAL [None]
  - RETINAL HAEMORRHAGE [None]
